FAERS Safety Report 7291783-4 (Version None)
Quarter: 2011Q1

REPORT INFORMATION
  Report Type: 
  Country: None (occurrence: None)
  Receive Date: 20110214
  Receipt Date: 20110214
  Transmission Date: 20110831
  Serious: Yes (Other)
  Sender: FDA-Public Use
  Company Number: US-ROXANE LABORATORIES, INC.-2011-RO-00134RO

PATIENT
  Sex: Male

DRUGS (2)
  1. PROVIGIL [Suspect]
     Indication: NARCOLEPSY
     Dosage: 400 MG
     Route: 048
     Dates: start: 20100801, end: 20110118
  2. LITHIUM CARBONATE [Suspect]
     Indication: BIPOLAR DISORDER
     Route: 048

REACTIONS (3)
  - CONDITION AGGRAVATED [None]
  - DRUG INTERACTION [None]
  - PERSONALITY CHANGE [None]
